FAERS Safety Report 22072521 (Version 1)
Quarter: 2023Q1

REPORT INFORMATION
  Report Type: Report from Study
  Country: CO (occurrence: CO)
  Receive Date: 20230308
  Receipt Date: 20230308
  Transmission Date: 20230418
  Serious: Yes (Hospitalization, Other)
  Sender: FDA-Public Use
  Company Number: CO-ABBVIE-4249481

PATIENT
  Age: 53 Year
  Sex: Female
  Weight: 43 kg

DRUGS (2)
  1. HUMIRA [Suspect]
     Active Substance: ADALIMUMAB
     Indication: Crohn^s disease
     Dosage: FORM STRENGTH: 40MG
     Route: 058
     Dates: end: 20221210
  2. HUMIRA [Suspect]
     Active Substance: ADALIMUMAB

REACTIONS (31)
  - Tachycardia [Recovering/Resolving]
  - Tooth disorder [Not Recovered/Not Resolved]
  - Lip discolouration [Recovered/Resolved]
  - Malnutrition [Not Recovered/Not Resolved]
  - Inflammation [Recovered/Resolved]
  - Dehydration [Not Recovered/Not Resolved]
  - Weight decreased [Recovered/Resolved]
  - Hypotension [Not Recovered/Not Resolved]
  - COVID-19 [Unknown]
  - Spinal disorder [Not Recovered/Not Resolved]
  - Gastrointestinal inflammation [Not Recovered/Not Resolved]
  - Insomnia [Recovered/Resolved]
  - Bedridden [Not Recovered/Not Resolved]
  - Loss of consciousness [Recovered/Resolved]
  - Vomiting [Recovered/Resolved]
  - Aphasia [Recovered/Resolved]
  - Head injury [Recovered/Resolved]
  - Dysstasia [Recovered/Resolved]
  - Asthenia [Recovered/Resolved]
  - Acute respiratory failure [Recovered/Resolved]
  - Nausea [Recovered/Resolved]
  - Nail disorder [Recovered/Resolved]
  - Fall [Recovered/Resolved]
  - Viral infection [Recovered/Resolved]
  - Fall [Recovered/Resolved]
  - Illness [Recovered/Resolved]
  - Tremor [Recovered/Resolved]
  - Feeling of despair [Recovered/Resolved]
  - Loss of personal independence in daily activities [Recovered/Resolved]
  - Abdominal discomfort [Recovered/Resolved]
  - Tachycardia [Recovered/Resolved]

NARRATIVE: CASE EVENT DATE: 20220901
